FAERS Safety Report 9155226 (Version 1)
Quarter: 2013Q1

REPORT INFORMATION
  Report Type: Spontaneous
  Country: US (occurrence: US)
  Receive Date: 20130311
  Receipt Date: 20130311
  Transmission Date: 20140127
  Serious: Yes (Hospitalization, Other)
  Sender: FDA-Public Use
  Company Number: US-ASTRAZENECA-2013SE15010

PATIENT
  Age: 68 Year
  Sex: Female
  Weight: 72.6 kg

DRUGS (19)
  1. NEXIUM [Suspect]
     Indication: GASTROOESOPHAGEAL REFLUX DISEASE
     Route: 048
     Dates: start: 2003, end: 2012
  2. NEXIUM [Suspect]
     Indication: DYSPEPSIA
     Route: 048
     Dates: start: 2003, end: 2012
  3. NEXIUM [Suspect]
     Indication: GASTROOESOPHAGEAL REFLUX DISEASE
     Route: 048
     Dates: start: 201301
  4. NEXIUM [Suspect]
     Indication: DYSPEPSIA
     Route: 048
     Dates: start: 201301
  5. LISINOPRIL [Suspect]
     Indication: HYPERTENSION
     Route: 048
  6. METOPROLOL [Suspect]
     Indication: HYPERTENSION
     Route: 048
     Dates: start: 1998
  7. FUROSEMIDE [Concomitant]
     Indication: FLUID IMBALANCE
     Route: 048
  8. DIAZEPAM [Concomitant]
     Indication: BALANCE DISORDER
     Dosage: 2 MG/5 MG BID
     Route: 048
  9. NIASPAN [Concomitant]
     Indication: HYPERCHOLESTEROLAEMIA
     Route: 048
  10. AMLODIPINE [Concomitant]
     Route: 048
  11. LANSOPRAZOLE [Concomitant]
     Route: 048
  12. BABY ASPIRIN [Concomitant]
     Indication: CARDIAC DISORDER
     Dosage: DAILY
     Route: 048
  13. MECLIZINE [Concomitant]
     Indication: BALANCE DISORDER
     Route: 048
  14. LIPO-FLAVONID [Concomitant]
     Indication: TINNITUS
     Dosage: DAILY
     Route: 048
  15. MUTIVITAMIN [Concomitant]
     Dosage: DAILY
     Route: 048
  16. FOLIC ACID [Concomitant]
     Dosage: DAILY
     Route: 048
  17. IRON [Concomitant]
     Dosage: DAILY
     Route: 048
  18. TRIPLE OMEGA THREE [Concomitant]
     Dosage: DAILY
     Route: 048
  19. CITRA CAL WITH VITAMIN D [Concomitant]
     Dosage: DAILY
     Route: 048

REACTIONS (10)
  - Fall [Recovered/Resolved]
  - Lower limb fracture [Recovered/Resolved with Sequelae]
  - Erosive oesophagitis [Recovered/Resolved]
  - Gastrooesophageal reflux disease [Recovered/Resolved]
  - Cough [Recovered/Resolved]
  - Neuropathy peripheral [Not Recovered/Not Resolved]
  - Age-related macular degeneration [Not Recovered/Not Resolved]
  - Osteoporosis [Not Recovered/Not Resolved]
  - Blood magnesium decreased [Not Recovered/Not Resolved]
  - Intentional drug misuse [Recovered/Resolved]
